FAERS Safety Report 6043993-1 (Version None)
Quarter: 2009Q1

REPORT INFORMATION
  Report Type: 
  Country: None (occurrence: None)
  Receive Date: 20090120
  Receipt Date: 20090108
  Transmission Date: 20090719
  Serious: Yes (Other)
  Sender: FDA-Public Use
  Company Number: US-PFIZER INC-2008153872

PATIENT
  Sex: Male
  Weight: 88.45 kg

DRUGS (9)
  1. ALDACTONE [Suspect]
     Indication: OEDEMA PERIPHERAL
     Dosage: 50 MG, 2X/DAY
     Route: 048
     Dates: start: 20080821, end: 20080101
  2. LASIX [Concomitant]
     Indication: OEDEMA PERIPHERAL
     Dosage: 20 MG, UNK
  3. METFORMIN [Concomitant]
     Indication: DIABETES MELLITUS
     Dosage: 750 MG, 3X/DAY
  4. GLIPIZIDE [Concomitant]
     Indication: DIABETES MELLITUS
     Dosage: 250 MG, 1X/DAY
  5. ENALAPRIL [Concomitant]
     Indication: HYPERTENSION
     Dosage: 10 MG, 2X/DAY
  6. PROTONIX [Concomitant]
     Indication: ULCER
     Dosage: 40 MG, 1X/DAY
  7. LACTULOSE [Concomitant]
     Dosage: 10 MG, 1X/DAY
  8. KLOR-CON [Concomitant]
     Dosage: 20 MG, 1X/DAY
  9. LOPERAMIDE [Concomitant]

REACTIONS (4)
  - BREAST TENDERNESS [None]
  - FEELING ABNORMAL [None]
  - NEPHROLITHIASIS [None]
  - PLATELET COUNT DECREASED [None]
